FAERS Safety Report 7391966-9 (Version None)
Quarter: 2011Q2

REPORT INFORMATION
  Report Type: 
  Country: None (occurrence: None)
  Receive Date: 20110404
  Receipt Date: 20110325
  Transmission Date: 20111010
  Serious: Yes (Other)
  Sender: FDA-Public Use
  Company Number: US-RB-023965-11

PATIENT
  Age: 81 Year
  Sex: Female

DRUGS (1)
  1. MUCINEX DM [Suspect]
     Dosage: PATIENT TOOK ONE TABLET ON 24-MAR-2011 AND ONE TABLET ON 25-MAR-2011.
     Route: 048
     Dates: start: 20110324

REACTIONS (2)
  - BLINDNESS [None]
  - METAMORPHOPSIA [None]
